FAERS Safety Report 14199565 (Version 1)
Quarter: 2017Q4

REPORT INFORMATION
  Report Type: Report from Study
  Country: US (occurrence: US)
  Receive Date: 20171117
  Receipt Date: 20171117
  Transmission Date: 20180321
  Serious: Yes (Hospitalization)
  Sender: FDA-Public Use
  Company Number: US-BRISTOL-MYERS SQUIBB COMPANY-BMS-2017-102347

PATIENT
  Age: 61 Year
  Sex: Female
  Weight: 93 kg

DRUGS (2)
  1. NIVOLUMAB [Suspect]
     Active Substance: NIVOLUMAB
     Indication: OVARIAN CANCER
     Dosage: 3 MG/KG, Q3WK, TOTAL DOSE 258 MG
     Route: 042
     Dates: start: 20170703, end: 20171013
  2. IPILIMUMAB [Suspect]
     Active Substance: IPILIMUMAB
     Indication: OVARIAN CANCER
     Dosage: 1 MG/KG, Q3WK,  TOTAL DOSE 86 MG
     Route: 042
     Dates: start: 20170703, end: 20170906

REACTIONS (1)
  - Pain [Recovering/Resolving]

NARRATIVE: CASE EVENT DATE: 20171021
